FAERS Safety Report 4548332-0 (Version None)
Quarter: 2005Q1

REPORT INFORMATION
  Report Type: 
  Country: None (occurrence: None)
  Receive Date: 20050106
  Receipt Date: 20050106
  Transmission Date: 20050727
  Serious: Yes (Other)
  Sender: FDA-Public Use
  Company Number: None

PATIENT
  Sex: Female
  Weight: 49.8957 kg

DRUGS (5)
  1. TRILEPTAL [Suspect]
     Indication: BIPOLAR DISORDER
     Dosage: DOSE DAILY
  2. TRILEPTAL [Suspect]
     Indication: SCHIZOAFFECTIVE DISORDER
     Dosage: DOSE DAILY
  3. ZYPREXA [Concomitant]
  4. COGENTIN [Concomitant]
  5. BENADRYL [Concomitant]

REACTIONS (3)
  - DIFFICULTY IN WALKING [None]
  - DIPLOPIA [None]
  - REFUSAL OF TREATMENT BY PATIENT [None]
